FAERS Safety Report 24083634 (Version 3)
Quarter: 2024Q3

REPORT INFORMATION
  Report Type: Spontaneous
  Country: GR (occurrence: GR)
  Receive Date: 20240712
  Receipt Date: 20240726
  Transmission Date: 20241016
  Serious: Yes (Other)
  Sender: RANBAXY
  Company Number: GR-SUN PHARMACEUTICAL INDUSTRIES LTD-2024R1-456837

PATIENT
  Age: 54 Year

DRUGS (1)
  1. VENLAFAXINE [Suspect]
     Active Substance: VENLAFAXINE HYDROCHLORIDE
     Indication: Product used for unknown indication
     Dosage: 75 MILLIGRAM, DAILY
     Route: 065

REACTIONS (1)
  - Abdominal wall haematoma [Recovered/Resolved]
